FAERS Safety Report 4472940-9 (Version None)
Quarter: 2004Q4

REPORT INFORMATION
  Report Type: 
  Country: None (occurrence: None)
  Receive Date: 20041007
  Receipt Date: 20041007
  Transmission Date: 20050328
  Serious: No
  Sender: FDA-Public Use
  Company Number: None

PATIENT
  Age: 35 Year
  Sex: Male

DRUGS (3)
  1. HALDOL [Suspect]
     Indication: PSYCHOTIC DISORDER
     Dosage: 10 MG PO BID
     Route: 048
  2. GEODON [Suspect]
     Indication: BIPOLAR DISORDER
     Dosage: 80 MG PO TID
     Route: 048
  3. GEODON [Suspect]
     Indication: PSYCHOTIC DISORDER
     Dosage: 80 MG PO TID
     Route: 048

REACTIONS (1)
  - AKATHISIA [None]
